FAERS Safety Report 17005229 (Version 3)
Quarter: 2020Q2

REPORT INFORMATION
  Report Type: Report from Study
  Country: US (occurrence: US)
  Receive Date: 20191107
  Receipt Date: 20200416
  Transmission Date: 20200713
  Serious: Yes (Hospitalization)
  Sender: FDA-Public Use
  Company Number: US-CELGENEUS-USA-20191011628

PATIENT
  Age: 69 Year
  Sex: Female
  Weight: 60 kg

DRUGS (13)
  1. METOPROLOL SUCCINATE ER [Concomitant]
     Active Substance: METOPROLOL SUCCINATE
     Dosage: 25 MG X 1 X 1 DAYS
     Route: 048
     Dates: start: 20191111
  2. ACETAMINOPHEN. [Concomitant]
     Active Substance: ACETAMINOPHEN
     Indication: PREMEDICATION
     Dosage: 650 MG X PRN
     Route: 048
     Dates: start: 20190920
  3. ONDANSETRON [Concomitant]
     Active Substance: ONDANSETRON
     Indication: PROPHYLAXIS
     Dosage: 4 MG X PRN
     Route: 048
     Dates: start: 20190820
  4. CALCIUM CARBONATE. [Concomitant]
     Active Substance: CALCIUM CARBONATE
     Indication: PROPHYLAXIS
     Dosage: 400 MG X 1 X 1 DAYS
     Route: 048
     Dates: start: 2002
  5. METOPROLOL SUCCINATE ER [Concomitant]
     Active Substance: METOPROLOL SUCCINATE
     Indication: HYPERTENSION
     Dosage: 25 MG X 1 X 1 DAYS
     Route: 048
     Dates: start: 2007, end: 20191031
  6. HYDROCODONE-ACETAMINOPHEN 7.5-325 [Concomitant]
     Indication: ABDOMINAL PAIN
     Dosage: 1 TABLET X PRN
     Route: 048
     Dates: start: 20190807
  7. FEDRATINIB [Suspect]
     Active Substance: FEDRATINIB
     Indication: MYELOFIBROSIS
     Dosage: 400 MG X 1 X 1 DAYS
     Route: 048
     Dates: start: 20190820, end: 20191028
  8. AMOXICILLIN. [Concomitant]
     Active Substance: AMOXICILLIN
     Indication: SINUS CONGESTION
     Dosage: 500 MG X 1 X 8 HOURS
     Route: 048
     Dates: start: 20191022, end: 20191028
  9. CETIRIZINE [Concomitant]
     Active Substance: CETIRIZINE HYDROCHLORIDE
     Indication: SINUS CONGESTION
     Dosage: 5 MG X PRN
     Route: 048
     Dates: start: 20191029
  10. AZELASTINE HCL [Concomitant]
     Active Substance: AZELASTINE HYDROCHLORIDE
     Indication: SINUS CONGESTION
     Dosage: 2 SPRAY X 2 X 1 DAYS
     Route: 045
     Dates: start: 2018
  11. DIPHENHYDRAMINE. [Concomitant]
     Active Substance: DIPHENHYDRAMINE
     Indication: PREMEDICATION
     Dosage: 25 MG X PRN
     Route: 048
     Dates: start: 20190920
  12. IBUPROFEN. [Concomitant]
     Active Substance: IBUPROFEN
     Indication: ABDOMINAL PAIN
     Dosage: 2 TABLET X PRN
     Route: 048
     Dates: start: 20190806
  13. LOPERAMIDE [Concomitant]
     Active Substance: LOPERAMIDE
     Indication: DIARRHOEA
     Dosage: 2 CAPSULE X PRN
     Route: 048
     Dates: start: 201903

REACTIONS (1)
  - Pleural effusion [Not Recovered/Not Resolved]

NARRATIVE: CASE EVENT DATE: 20191028
